FAERS Safety Report 10202463 (Version 7)
Quarter: 2017Q2

REPORT INFORMATION
  Report Type: Report from Study
  Country: US (occurrence: US)
  Receive Date: 20140528
  Receipt Date: 20170419
  Transmission Date: 20170829
  Serious: Yes (Other)
  Sender: FDA-Public Use
  Company Number: US-SANOFI-AVENTIS-2013SA076362

PATIENT
  Age: 42 Year
  Sex: Male
  Weight: 135 kg

DRUGS (16)
  1. OMEGA 3 [Concomitant]
     Active Substance: OMEGA-3 FATTY ACIDS
  2. AUBAGIO [Suspect]
     Active Substance: TERIFLUNOMIDE
     Indication: MULTIPLE SCLEROSIS
     Route: 048
     Dates: start: 20131017
  3. LISINOPRIL. [Concomitant]
     Active Substance: LISINOPRIL
  4. HYDROCODONE [Concomitant]
     Active Substance: HYDROCODONE
  5. NEXIUM [Concomitant]
     Active Substance: ESOMEPRAZOLE MAGNESIUM
  6. ACETAMINOPHEN. [Concomitant]
     Active Substance: ACETAMINOPHEN
  7. AUBAGIO [Suspect]
     Active Substance: TERIFLUNOMIDE
     Indication: MULTIPLE SCLEROSIS
     Route: 048
     Dates: start: 20131017
  8. MOXIFLOXACIN. [Concomitant]
     Active Substance: MOXIFLOXACIN
  9. FENOFIBRATE. [Concomitant]
     Active Substance: FENOFIBRATE
  10. BUPROPION HYDROCHLORIDE. [Concomitant]
     Active Substance: BUPROPION HYDROCHLORIDE
  11. CODEINE [Concomitant]
     Active Substance: CODEINE
  12. FUROSEMIDE. [Concomitant]
     Active Substance: FUROSEMIDE
  13. ESOMEPRAZOLE MAGNESIUM. [Concomitant]
     Active Substance: ESOMEPRAZOLE MAGNESIUM
  14. SIMVASTATIN. [Concomitant]
     Active Substance: SIMVASTATIN
  15. AUBAGIO [Suspect]
     Active Substance: TERIFLUNOMIDE
     Indication: MULTIPLE SCLEROSIS
     Route: 048
     Dates: start: 20121114, end: 20131001
  16. BUMETANIDE. [Concomitant]
     Active Substance: BUMETANIDE

REACTIONS (18)
  - Bladder cancer [Unknown]
  - Vision blurred [Unknown]
  - Balance disorder [Recovered/Resolved]
  - Fall [Recovered/Resolved]
  - Peripheral swelling [Unknown]
  - Memory impairment [Unknown]
  - Laziness [Unknown]
  - Erythema [Unknown]
  - Diarrhoea [Unknown]
  - Depression [Unknown]
  - Headache [Recovered/Resolved]
  - Unevaluable event [Unknown]
  - Weight increased [Unknown]
  - Pruritus [Unknown]
  - Hyperphagia [Unknown]
  - Carpal tunnel syndrome [Unknown]
  - Dizziness [Recovered/Resolved]
  - Decreased interest [Unknown]

NARRATIVE: CASE EVENT DATE: 20140514
